FAERS Safety Report 15627271 (Version 3)
Quarter: 2018Q4

REPORT INFORMATION
  Report Type: Report from Study
  Country: AT (occurrence: AT)
  Receive Date: 20181116
  Receipt Date: 20181212
  Transmission Date: 20190205
  Serious: Yes (Hospitalization, Other)
  Sender: FDA-Public Use
  Company Number: AT-PFIZER INC-2018467470

PATIENT
  Age: 65 Year
  Sex: Male
  Weight: 56 kg

DRUGS (35)
  1. GEMCITABINE HYDROCHLORIDE. [Suspect]
     Active Substance: GEMCITABINE HYDROCHLORIDE
     Dosage: 842 MG/M2, UNK
     Route: 065
     Dates: start: 201609
  2. ABRAXANE [Suspect]
     Active Substance: PACLITAXEL
     Dosage: 200 MG/M2, UNK
     Route: 041
     Dates: start: 201610
  3. ABRAXANE [Suspect]
     Active Substance: PACLITAXEL
     Dosage: 119 MG/M2, UNK
     Route: 041
     Dates: start: 20170112
  4. GEMCITABINE HYDROCHLORIDE. [Suspect]
     Active Substance: GEMCITABINE HYDROCHLORIDE
     Dosage: 1636 MG/M2, UNK
     Route: 065
     Dates: start: 201610
  5. GEMCITABINE HYDROCHLORIDE. [Suspect]
     Active Substance: GEMCITABINE HYDROCHLORIDE
     Dosage: 1642 MG/M2, UNK
     Route: 065
     Dates: start: 201610
  6. ABRAXANE [Suspect]
     Active Substance: PACLITAXEL
     Dosage: 161 MG/M2, UNK
     Route: 041
     Dates: start: 201611
  7. GEMCITABINE HYDROCHLORIDE. [Suspect]
     Active Substance: GEMCITABINE HYDROCHLORIDE
     Dosage: 5066 MG/M2, UNK (DOSAGE TEXT: 2533)
     Route: 065
     Dates: start: 20160921
  8. ABRAXANE [Suspect]
     Active Substance: PACLITAXEL
     Indication: PANCREATIC CARCINOMA
     Dosage: 211 MG/M2, UNK
     Route: 041
     Dates: start: 201609
  9. GEMCITABINE HYDROCHLORIDE. [Suspect]
     Active Substance: GEMCITABINE HYDROCHLORIDE
     Dosage: 7861 MG/M2, UNK
     Route: 065
     Dates: start: 201610
  10. GEMCITABINE HYDROCHLORIDE. [Suspect]
     Active Substance: GEMCITABINE HYDROCHLORIDE
     Dosage: 1218 MG/M2, UNK
     Route: 065
     Dates: start: 20170112
  11. ABRAXANE [Suspect]
     Active Substance: PACLITAXEL
     Dosage: 104 MG/M2, UNK
     Route: 041
     Dates: start: 201609
  12. ABRAXANE [Suspect]
     Active Substance: PACLITAXEL
     Dosage: 842 MG/M2, UNK
     Route: 041
     Dates: start: 201610
  13. GEMCITABINE HYDROCHLORIDE. [Suspect]
     Active Substance: GEMCITABINE HYDROCHLORIDE
     Dosage: 6221 MG/M2, UNK
     Route: 065
     Dates: start: 201611
  14. GEMCITABINE HYDROCHLORIDE. [Suspect]
     Active Substance: GEMCITABINE HYDROCHLORIDE
     Dosage: 1304.29 MG, UNK
     Route: 065
     Dates: start: 20161215
  15. GEMCITABINE HYDROCHLORIDE. [Suspect]
     Active Substance: GEMCITABINE HYDROCHLORIDE
     Dosage: 5424 MG/M2, UNK
     Route: 065
     Dates: start: 201701, end: 20170210
  16. ABRAXANE [Suspect]
     Active Substance: PACLITAXEL
     Dosage: 526 MG/M2, UNK
     Route: 041
     Dates: start: 20161012
  17. COLECALCIFEROL [Concomitant]
     Active Substance: CHOLECALCIFEROL
     Dosage: 4 MG, 1X/DAY
     Route: 065
  18. GEMCITABINE HYDROCHLORIDE. [Suspect]
     Active Substance: GEMCITABINE HYDROCHLORIDE
     Dosage: 1691 MG/M2, UNK
     Route: 065
     Dates: start: 201609
  19. GEMCITABINE HYDROCHLORIDE. [Suspect]
     Active Substance: GEMCITABINE HYDROCHLORIDE
     Dosage: 1635 MG/M2, UNK
     Route: 065
     Dates: start: 201610
  20. GEMCITABINE HYDROCHLORIDE. [Suspect]
     Active Substance: GEMCITABINE HYDROCHLORIDE
     Dosage: 3888 MG/M2, UNK
     Route: 065
     Dates: start: 201611
  21. GEMCITABINE HYDROCHLORIDE. [Suspect]
     Active Substance: GEMCITABINE HYDROCHLORIDE
     Dosage: 3390 MG/M2, UNK
     Route: 065
     Dates: start: 201701
  22. ABRAXANE [Suspect]
     Active Substance: PACLITAXEL
     Dosage: 630 MG/M2, UNK (DOSAGE TEXT 315MG(M2)
     Route: 041
     Dates: start: 20160921
  23. ABRAXANE [Suspect]
     Active Substance: PACLITAXEL
     Dosage: 776 MG/M2, UNK
     Route: 041
     Dates: start: 201611
  24. ABRAXANE [Suspect]
     Active Substance: PACLITAXEL
     Dosage: 324 MG/M2, UNK (DOSAGE TEXT 162MG)
     Route: 041
     Dates: start: 20161215
  25. ABRAXANE [Suspect]
     Active Substance: PACLITAXEL
     Dosage: 163 MG/M2, UNK
     Route: 041
     Dates: start: 201610
  26. GEMCITABINE HYDROCHLORIDE. [Suspect]
     Active Substance: GEMCITABINE HYDROCHLORIDE
     Indication: PANCREATIC CARCINOMA
     Dosage: 4306 MG/M2, UNK
     Route: 065
     Dates: start: 201609
  27. GEMCITABINE HYDROCHLORIDE. [Suspect]
     Active Substance: GEMCITABINE HYDROCHLORIDE
     Dosage: 4913 MG/M2, UNK
     Route: 065
     Dates: start: 20161012
  28. GEMCITABINE HYDROCHLORIDE. [Suspect]
     Active Substance: GEMCITABINE HYDROCHLORIDE
     Dosage: 1295 MG/M2, UNK
     Route: 065
     Dates: start: 201611
  29. GEMCITABINE HYDROCHLORIDE. [Suspect]
     Active Substance: GEMCITABINE HYDROCHLORIDE
     Dosage: 963 MG/M2, UNK
     Route: 065
     Dates: start: 201611
  30. GEMCITABINE HYDROCHLORIDE. [Suspect]
     Active Substance: GEMCITABINE HYDROCHLORIDE
     Dosage: 1289 MG/M2, UNK
     Route: 065
     Dates: start: 20161117
  31. GEMCITABINE HYDROCHLORIDE. [Suspect]
     Active Substance: GEMCITABINE HYDROCHLORIDE
     Dosage: 1209 MG/M2, UNK
     Route: 065
     Dates: start: 201701
  32. ABRAXANE [Suspect]
     Active Substance: PACLITAXEL
     Dosage: 536 MG/M2, UNK
     Route: 041
     Dates: start: 20161012
  33. ABRAXANE [Suspect]
     Active Substance: PACLITAXEL
     Dosage: 485 MG/M2, UNK
     Route: 041
     Dates: start: 201611
  34. ABRAXANE [Suspect]
     Active Substance: PACLITAXEL
     Dosage: 324 MG/M2, UNK (DOSAGE TEXT 162MG/M2)
     Route: 041
     Dates: start: 20161117
  35. NEXIUM [ESOMEPRAZOLE SODIUM] [Concomitant]
     Dosage: 80 MG, 1X/DAY
     Route: 065

REACTIONS (10)
  - Leukopenia [Recovered/Resolved]
  - Leukopenia [Unknown]
  - Leukopenia [Recovered/Resolved]
  - Neutropenia [Recovered/Resolved]
  - Anastomotic ulcer [Recovered/Resolved]
  - Neutropenia [Recovered/Resolved]
  - Leukopenia [Recovered/Resolved]
  - Neutropenia [Recovered/Resolved]
  - Leukopenia [Recovered/Resolved]
  - Anaemia [Recovered/Resolved]

NARRATIVE: CASE EVENT DATE: 20160928
